FAERS Safety Report 12500256 (Version 3)
Quarter: 2016Q3

REPORT INFORMATION
  Report Type: Spontaneous
  Country: FR (occurrence: FR)
  Receive Date: 20160627
  Receipt Date: 20160825
  Transmission Date: 20161109
  Serious: Yes (Hospitalization)
  Sender: FDA-Public Use
  Company Number: FR-TEVA-669024ISR

PATIENT
  Age: 21 Year
  Sex: Female
  Weight: 57 kg

DRUGS (3)
  1. ANTADYS 100 MG [Suspect]
     Active Substance: FLURBIPROFEN
     Dosage: 2 DOSAGE FORMS DAILY;
     Route: 048
     Dates: start: 201601
  2. ANTADYS 100 MG [Suspect]
     Active Substance: FLURBIPROFEN
     Route: 048
     Dates: start: 20160223
  3. ANTADYS 100 MG [Suspect]
     Active Substance: FLURBIPROFEN
     Indication: DYSMENORRHOEA
     Dosage: 1 DOSAGE FORMS DAILY;
     Route: 048
     Dates: start: 201511

REACTIONS (7)
  - Duodenitis [Unknown]
  - Abdominal discomfort [Not Recovered/Not Resolved]
  - Abdominal pain upper [Not Recovered/Not Resolved]
  - Gastritis erosive [Unknown]
  - Vomiting [Unknown]
  - Diarrhoea [Unknown]
  - Hot flush [Unknown]

NARRATIVE: CASE EVENT DATE: 201511
